FAERS Safety Report 10082063 (Version 1)
Quarter: 2014Q2

REPORT INFORMATION
  Report Type: Spontaneous
  Country: US (occurrence: None)
  Receive Date: 20140414
  Receipt Date: 20140414
  Transmission Date: 20141212
  Serious: Yes (Hospitalization)
  Sender: FDA-Public Use
  Company Number: UTC-046862

PATIENT
  Age: 75 Year
  Sex: Female

DRUGS (1)
  1. REMODULIN [Suspect]
     Dosage: 43.2 UG/KG (0.03 UG/KG, 1 IN 1 MIN) INTRAVENEOUS DRIP
     Route: 041

REACTIONS (1)
  - Viral upper respiratory tract infection [None]
